FAERS Safety Report 25280333 (Version 2)
Quarter: 2025Q2

REPORT INFORMATION
  Report Type: Report from Study
  Country: US (occurrence: US)
  Receive Date: 20250507
  Receipt Date: 20250519
  Transmission Date: 20250717
  Serious: Yes (Other)
  Sender: ABBVIE
  Company Number: US-ABBVIE-6269115

PATIENT
  Age: 68 Year
  Sex: Female

DRUGS (2)
  1. SYNTHROID [Suspect]
     Active Substance: LEVOTHYROXINE SODIUM
     Indication: Thyroid disorder
     Dosage: FORM STRENGTH: 100 MICROGRAM
     Route: 048
     Dates: start: 2010
  2. PREDNISONE [Concomitant]
     Active Substance: PREDNISONE
     Indication: Product used for unknown indication

REACTIONS (5)
  - Pain in extremity [Unknown]
  - Rheumatoid arthritis [Unknown]
  - Surgery [Unknown]
  - Bunion operation [Unknown]
  - Foot deformity [Unknown]

NARRATIVE: CASE EVENT DATE: 20250101
